FAERS Safety Report 24372386 (Version 1)
Quarter: 2024Q3

REPORT INFORMATION
  Report Type: Spontaneous
  Country: TR (occurrence: TR)
  Receive Date: 20240927
  Receipt Date: 20240927
  Transmission Date: 20241017
  Serious: Yes (Other)
  Sender: RANBAXY
  Company Number: TR-SUN PHARMACEUTICAL INDUSTRIES LTD-2024R1-469930

PATIENT
  Age: 6 Year
  Sex: Male

DRUGS (6)
  1. METHYLPHENIDATE [Suspect]
     Active Substance: METHYLPHENIDATE
     Indication: Attention deficit hyperactivity disorder
     Dosage: 10 MILLIGRAM, DAILY
     Route: 065
     Dates: start: 202205
  2. METHYLPHENIDATE [Suspect]
     Active Substance: METHYLPHENIDATE
     Dosage: 20 MILLIGRAM, DAILY
     Route: 065
     Dates: start: 202206
  3. METHYLPHENIDATE [Suspect]
     Active Substance: METHYLPHENIDATE
     Dosage: 10 MILLIGRAM, DAILY
     Route: 065
     Dates: start: 202209
  4. METHYLPHENIDATE [Suspect]
     Active Substance: METHYLPHENIDATE
     Dosage: 20 MILLIGRAM, DAILY
     Route: 065
     Dates: start: 202305
  5. METHYLPHENIDATE [Suspect]
     Active Substance: METHYLPHENIDATE
     Dosage: 30 MILLIGRAM, DAILY
     Route: 065
  6. RISPERIDONE [Suspect]
     Active Substance: RISPERIDONE
     Indication: Attention deficit hyperactivity disorder
     Dosage: 0.25 MILLIGRAM, DAILY
     Route: 065

REACTIONS (1)
  - Dystonia [Recovered/Resolved]
